FAERS Safety Report 7690559-3 (Version None)
Quarter: 2011Q3

REPORT INFORMATION
  Report Type: 
  Country: None (occurrence: None)
  Receive Date: 20110818
  Receipt Date: 20110815
  Transmission Date: 20111222
  Serious: Yes (Other)
  Sender: FDA-Public Use
  Company Number: US-PFIZER INC-2011013530

PATIENT
  Sex: Female

DRUGS (6)
  1. CLOMID [Concomitant]
     Indication: OVULATION DISORDER
     Dosage: UNK
     Dates: start: 20100101
  2. AMBIEN [Concomitant]
     Indication: INSOMNIA
     Dosage: UNK, AS NEEDED
  3. SERTRALINE HYDROCHLORIDE [Suspect]
     Indication: DEPRESSION
     Dosage: 25 MG, DAILY
     Route: 048
     Dates: start: 20010101
  4. SERTRALINE HYDROCHLORIDE [Suspect]
     Indication: ANXIETY
  5. PRENATAL VITAMINS [Concomitant]
     Dosage: UNK
     Dates: start: 20090101
  6. FOLIC ACID [Concomitant]
     Dosage: UNK

REACTIONS (1)
  - PLACENTA PRAEVIA [None]
